FAERS Safety Report 6921818-7 (Version None)
Quarter: 2010Q3

REPORT INFORMATION
  Report Type: 
  Country: None (occurrence: None)
  Receive Date: 20100812
  Receipt Date: 20100805
  Transmission Date: 20110219
  Serious: Yes (Other)
  Sender: FDA-Public Use
  Company Number: US-PFIZER INC-2010092510

PATIENT
  Sex: Female
  Weight: 44.444 kg

DRUGS (12)
  1. LYRICA [Suspect]
     Indication: BACK PAIN
     Dosage: 50 MG, 1X/DAY
     Route: 048
     Dates: start: 20100701, end: 20100808
  2. LYRICA [Suspect]
     Indication: PAIN IN EXTREMITY
  3. LYRICA [Suspect]
     Indication: MUSCULOSKELETAL DISCOMFORT
  4. LYRICA [Suspect]
     Indication: PELVIC DISCOMFORT
  5. LORTAB [Concomitant]
     Indication: PAIN
     Dosage: UNK
  6. PROTONIX [Concomitant]
     Dosage: UNK
  7. XANAX [Concomitant]
     Dosage: UNK
  8. LANOXIN [Concomitant]
     Indication: HYPERTENSION
     Dosage: UNK
  9. ATENOLOL [Concomitant]
     Indication: HYPERTENSION
     Dosage: UNK
  10. LISINOPRIL [Concomitant]
     Indication: HYPERTENSION
     Dosage: UNK
  11. ENTOCORT EC [Concomitant]
     Indication: COLITIS
     Dosage: UNK
  12. PLAVIX [Concomitant]
     Dosage: UNK

REACTIONS (6)
  - BLOOD PRESSURE DECREASED [None]
  - BLOOD PRESSURE INCREASED [None]
  - CONFUSIONAL STATE [None]
  - MEMORY IMPAIRMENT [None]
  - MENTAL IMPAIRMENT [None]
  - TOOTH FRACTURE [None]
